FAERS Safety Report 4828883-1 (Version None)
Quarter: 2005Q4

REPORT INFORMATION
  Report Type: 
  Country: None (occurrence: None)
  Receive Date: 20051114
  Receipt Date: 20051114
  Transmission Date: 20060501
  Serious: Yes (Hospitalization)
  Sender: FDA-Public Use
  Company Number: None

PATIENT
  Age: 47 Year
  Sex: Male
  Weight: 176.4492 kg

DRUGS (16)
  1. ZOCOR [Suspect]
     Indication: HYPERCHOLESTEROLAEMIA
     Dosage: 40 MG DAILY PO CHRONIC
     Route: 048
  2. CARDIZEM [Concomitant]
  3. NEURONTIN [Concomitant]
  4. METFORMIN [Concomitant]
  5. DURAGESIC-100 [Concomitant]
  6. GLUCOTROL [Concomitant]
  7. TOPROL-XL [Concomitant]
  8. FOLIC ACID [Concomitant]
  9. LANTUS [Concomitant]
  10. RYTHMOL [Concomitant]
  11. PREVACID [Concomitant]
  12. REQUIP [Concomitant]
  13. ZOLOFT [Concomitant]
  14. ... [Concomitant]
  15. DIOVAN [Concomitant]
  16. COUMADIN [Concomitant]

REACTIONS (3)
  - CONFUSIONAL STATE [None]
  - MENTAL STATUS CHANGES [None]
  - RHABDOMYOLYSIS [None]
